FAERS Safety Report 7805408-X (Version None)
Quarter: 2011Q4

REPORT INFORMATION
  Report Type: 
  Country: None (occurrence: None)
  Receive Date: 20111010
  Receipt Date: 20110928
  Transmission Date: 20120403
  Serious: Yes (Hospitalization)
  Sender: FDA-Public Use
  Company Number: FR-PFIZER INC-2011230886

PATIENT
  Age: 52 Year
  Sex: Male

DRUGS (3)
  1. GEMTUZUMAB OZOGAMICIN [Suspect]
     Indication: ACUTE LEUKAEMIA
     Dosage: 6 MG/M2, SINGLE
     Route: 042
     Dates: start: 20100620, end: 20100620
  2. CYTARABINE [Suspect]
     Indication: ACUTE LEUKAEMIA
     Dosage: 1000 MG/M2, 2X/DAY
     Route: 042
     Dates: start: 20100617, end: 20100621
  3. MITOXANTRONE [Suspect]
     Indication: ACUTE LEUKAEMIA
     Dosage: 12 MG/M2, 1X/DAY
     Route: 042
     Dates: start: 20100617, end: 20100618

REACTIONS (1)
  - NEUROCRYPTOCOCCOSIS [None]
